FAERS Safety Report 4444660-8 (Version None)
Quarter: 2004Q3

REPORT INFORMATION
  Report Type: 
  Country: None (occurrence: None)
  Receive Date: 20040907
  Receipt Date: 20030828
  Transmission Date: 20050211
  Serious: Yes (Other)
  Sender: FDA-Public Use
  Company Number: 2003-08-2662

PATIENT
  Age: 75 Year
  Sex: Male

DRUGS (7)
  1. IMDUR [Suspect]
     Dosage: ORAL
     Route: 048
  2. ATENOLOL [Suspect]
     Dosage: ORAL
     Route: 048
  3. LOSEC [Suspect]
     Dosage: ORAL
     Route: 048
  4. ATORVASTATIN CALCIUM [Suspect]
  5. CLOPIDOGREL [Suspect]
  6. NICORANDIL [Suspect]
  7. TRANDOLAPRIL [Suspect]

REACTIONS (3)
  - PENILE ULCERATION [None]
  - TONSILLAR ULCER [None]
  - TONSILLITIS [None]
